FAERS Safety Report 8210361-3 (Version None)
Quarter: 2012Q1

REPORT INFORMATION
  Report Type: 
  Country: None (occurrence: None)
  Receive Date: 20120314
  Receipt Date: 20110314
  Transmission Date: 20120608
  Serious: No
  Sender: FDA-Public Use
  Company Number: US-ASTRAZENECA-2011SE01590

PATIENT
  Age: 48 Year
  Sex: Female

DRUGS (2)
  1. TOPROL-XL [Suspect]
     Indication: HYPERTENSION
     Route: 048
     Dates: start: 20080101
  2. TOPROL-XL [Suspect]
     Route: 048

REACTIONS (4)
  - DIZZINESS [None]
  - IMPAIRED WORK ABILITY [None]
  - DRUG DOSE OMISSION [None]
  - DRUG INEFFECTIVE [None]
